FAERS Safety Report 5636087-8 (Version None)
Quarter: 2008Q1

REPORT INFORMATION
  Report Type: 
  Country: None (occurrence: None)
  Receive Date: 20080225
  Receipt Date: 20080213
  Transmission Date: 20080703
  Serious: Yes (Other)
  Sender: FDA-Public Use
  Company Number: US-JNJFOC-20080203284

PATIENT
  Age: 34 Year
  Sex: Female
  Weight: 90.72 kg

DRUGS (3)
  1. IMODIUM ADVANCED [Suspect]
     Route: 048
  2. IMODIUM ADVANCED [Suspect]
     Indication: DIARRHOEA
     Route: 048
  3. PEPTO BISMOL [Concomitant]

REACTIONS (2)
  - HAEMATOCHEZIA [None]
  - OVERDOSE [None]
